FAERS Safety Report 5628721-3 (Version None)
Quarter: 2008Q1

REPORT INFORMATION
  Report Type: 
  Country: None (occurrence: None)
  Receive Date: 20080215
  Receipt Date: 20080215
  Transmission Date: 20080703
  Serious: No
  Sender: FDA-Public Use
  Company Number: None

PATIENT
  Age: 41 Year
  Sex: Female
  Weight: 74.8435 kg

DRUGS (1)
  1. NASACORT AQ [Suspect]
     Indication: MULTIPLE ALLERGIES
     Dates: start: 20040712, end: 20060429

REACTIONS (1)
  - CATARACT [None]
